FAERS Safety Report 4955606-8 (Version None)
Quarter: 2006Q1

REPORT INFORMATION
  Report Type: 
  Country: None (occurrence: None)
  Receive Date: 20060328
  Receipt Date: 20051215
  Transmission Date: 20060701
  Serious: Yes (Hospitalization, Other)
  Sender: FDA-Public Use
  Company Number: US-MERCK-0512USA02577

PATIENT
  Age: 61 Year
  Sex: Female
  Weight: 68 kg

DRUGS (11)
  1. VIOXX [Suspect]
     Indication: ARTHRALGIA
     Route: 048
     Dates: start: 20010129, end: 20020920
  2. VIOXX [Suspect]
     Indication: TOOTHACHE
     Route: 048
     Dates: start: 20010129, end: 20020920
  3. WELLBUTRIN [Concomitant]
     Route: 065
  4. RETIN-A [Concomitant]
     Route: 065
  5. HYDROCODONE BITARTRATE [Concomitant]
     Route: 065
  6. FEMHRT [Concomitant]
     Route: 065
  7. WARFARIN [Concomitant]
     Route: 065
  8. CEFADROXIL [Concomitant]
     Route: 065
  9. SMZ-TMP [Concomitant]
     Route: 065
  10. ACETAMINOPHEN AND CODEINE [Concomitant]
     Route: 065
  11. ALEVE [Concomitant]
     Route: 065

REACTIONS (5)
  - FALL [None]
  - HIP ARTHROPLASTY [None]
  - HYPERTENSION [None]
  - MYOCARDIAL INFARCTION [None]
  - SILENT MYOCARDIAL INFARCTION [None]
